FAERS Safety Report 5162112-7 (Version None)
Quarter: 2006Q4

REPORT INFORMATION
  Report Type: 
  Country: None (occurrence: None)
  Receive Date: 20061121
  Receipt Date: 20061107
  Transmission Date: 20070319
  Serious: Yes (Life-Threatening, Hospitalization, Other)
  Sender: FDA-Public Use
  Company Number: 2005-05-1260

PATIENT
  Age: 30 Year
  Sex: Female
  Weight: 50 kg

DRUGS (11)
  1. POSACONAZOLE [Suspect]
     Indication: FUNGAL INFECTION
     Dosage: SEE IMAGE
     Route: 048
     Dates: end: 20050519
  2. POSACONAZOLE [Suspect]
     Indication: FUNGAL INFECTION
     Dosage: SEE IMAGE
     Route: 048
     Dates: start: 20050702, end: 20050705
  3. POSACONAZOLE [Suspect]
     Indication: FUNGAL INFECTION
     Dosage: SEE IMAGE
     Route: 048
     Dates: start: 20050427
  4. POSACONAZOLE [Suspect]
     Indication: FUNGAL INFECTION
     Dosage: SEE IMAGE
     Route: 048
     Dates: start: 20050708
  5. MORPHINE [Suspect]
     Indication: PLEURITIC PAIN
     Dosage: SEE IMAGE
     Route: 058
     Dates: end: 20050520
  6. MORPHINE [Suspect]
     Indication: PLEURITIC PAIN
     Dosage: SEE IMAGE
     Route: 058
     Dates: start: 20050516
  7. AMBISOME [Suspect]
  8. NEORAL [Concomitant]
  9. TPN [Concomitant]
  10. MEDROL [Concomitant]
  11. BACTRIM [Concomitant]

REACTIONS (14)
  - BACTERIAL INFECTION [None]
  - BLOOD ALKALINE PHOSPHATASE INCREASED [None]
  - BRONCHITIS [None]
  - DISEASE PROGRESSION [None]
  - FUNGAL INFECTION [None]
  - HYPERCAPNIA [None]
  - LUNG INFILTRATION [None]
  - NAUSEA [None]
  - NODULE [None]
  - PLEURITIC PAIN [None]
  - RESPIRATORY FAILURE [None]
  - STENOTROPHOMONAS INFECTION [None]
  - TRANSAMINASES INCREASED [None]
  - VOMITING [None]
